FAERS Safety Report 4349355-7 (Version None)
Quarter: 2004Q2

REPORT INFORMATION
  Report Type: 
  Country: None (occurrence: None)
  Receive Date: 20040428
  Receipt Date: 20040413
  Transmission Date: 20050107
  Serious: Yes (Other)
  Sender: FDA-Public Use
  Company Number: PHBS2004BR05152

PATIENT
  Age: 73 Year
  Sex: Female
  Weight: 100 kg

DRUGS (5)
  1. EXELON [Suspect]
     Dosage: 1.5 MG/D
     Route: 048
     Dates: start: 20030401
  2. EXELON [Suspect]
     Dosage: 3 MG/D
     Route: 048
  3. EXELON [Suspect]
     Dosage: 6 MG/D
     Route: 048
  4. ANTIPSYCHOTICS [Concomitant]
     Route: 065
  5. ERANZ [Concomitant]
     Route: 065

REACTIONS (2)
  - CARDIOMYOPATHY [None]
  - SYNCOPE [None]
